FAERS Safety Report 10462958 (Version 4)
Quarter: 2015Q1

REPORT INFORMATION
  Report Type: Spontaneous
  Country: IT (occurrence: IT)
  Receive Date: 20140918
  Receipt Date: 20150319
  Transmission Date: 20150720
  Serious: Yes (Hospitalization)
  Sender: FDA-Public Use
  Company Number: IT-ASTRAZENECA-2014SE69544

PATIENT
  Age: 29521 Day
  Sex: Female

DRUGS (12)
  1. SINTROM [Interacting]
     Active Substance: ACENOCOUMAROL
     Indication: THROMBOSIS PROPHYLAXIS
     Route: 048
  2. OMEPRAZEN [Interacting]
     Active Substance: OMEPRAZOLE
     Indication: GASTRITIS
     Route: 048
  3. CONTRAMAL [Interacting]
     Active Substance: TRAMADOL HYDROCHLORIDE
     Indication: ABDOMINAL PAIN
     Dosage: 100 MG/ML ORAL DROPS, 37.5 MG DAILY
     Route: 048
  4. CONGESCOR [Concomitant]
     Active Substance: BISOPROLOL
     Indication: HYPERTENSION
     Route: 048
     Dates: start: 20140721
  5. OMEPRAZEN [Suspect]
     Active Substance: OMEPRAZOLE
     Indication: GASTRITIS
     Route: 048
  6. SINTROM [Interacting]
     Active Substance: ACENOCOUMAROL
     Indication: THROMBOSIS PROPHYLAXIS
     Route: 048
     Dates: start: 20100701, end: 20140715
  7. CONGESCOR [Concomitant]
     Active Substance: BISOPROLOL
     Indication: HYPERTENSION
     Route: 048
     Dates: start: 20100701, end: 20140716
  8. CONTRAMAL [Interacting]
     Active Substance: TRAMADOL HYDROCHLORIDE
     Indication: PAIN
     Dosage: 100 MG/ML ORAL DROPS, 37.5 MG DAILY
     Route: 048
  9. LANOXIN [Concomitant]
     Active Substance: DIGOXIN
     Indication: MITRAL VALVE INCOMPETENCE
     Route: 048
     Dates: start: 20100701, end: 20140716
  10. FLUSS [Concomitant]
     Active Substance: FUROSEMIDE\TRIAMTERENE
     Indication: ESSENTIAL HYPERTENSION
     Dosage: 40 + 25 MG, ALTERNATE DAYS
     Route: 048
     Dates: start: 20100701, end: 20140716
  11. ROCEFIN [Concomitant]
     Active Substance: CEFTRIAXONE SODIUM
     Dosage: 2 G, 1 VIAL/DIE
  12. LASIX [Concomitant]
     Active Substance: FUROSEMIDE
     Dosage: 1 VIAL/DIE
     Dates: end: 20140723

REACTIONS (11)
  - Anaemia [Recovering/Resolving]
  - Drug interaction [Unknown]
  - Oedema peripheral [Unknown]
  - Intestinal dilatation [Unknown]
  - Asthenia [Recovered/Resolved]
  - Pleural effusion [Unknown]
  - Weight decreased [Recovering/Resolving]
  - Cholestasis [Unknown]
  - Haematoma [Recovering/Resolving]
  - Hydrocholecystis [Unknown]
  - Ecchymosis [Recovering/Resolving]

NARRATIVE: CASE EVENT DATE: 20140716
